FAERS Safety Report 7737964-4 (Version None)
Quarter: 2011Q3

REPORT INFORMATION
  Report Type: 
  Country: None (occurrence: None)
  Receive Date: 20110908
  Receipt Date: 20110902
  Transmission Date: 20111222
  Serious: Yes (Other)
  Sender: FDA-Public Use
  Company Number: KR-PFIZER INC-2011206134

PATIENT
  Sex: Male

DRUGS (3)
  1. XANAX [Suspect]
     Indication: ANXIETY
  2. XANAX [Suspect]
     Indication: PALPITATIONS
     Dosage: 0.5 MG, 2X/DAY
     Dates: start: 20100101
  3. XANAX [Suspect]
     Indication: INSOMNIA

REACTIONS (2)
  - PALPITATIONS [None]
  - DRUG DEPENDENCE [None]
